FAERS Safety Report 9933674 (Version 2)
Quarter: 2014Q1

REPORT INFORMATION
  Report Type: Report from Study
  Country: US (occurrence: US)
  Receive Date: 20140228
  Receipt Date: 20140228
  Transmission Date: 20141002
  Serious: No
  Sender: FDA-Public Use
  Company Number: US-MYLANLABS-2014S1000102

PATIENT
  Age: 17 Year
  Sex: Male
  Weight: 86.18 kg

DRUGS (2)
  1. AMNESTEEM CAPSULES [Suspect]
     Indication: ACNE
     Dates: start: 20130822, end: 20131021
  2. AMNESTEEM CAPSULES [Suspect]
     Indication: ACNE
     Dates: start: 2013, end: 2013

REACTIONS (2)
  - Aspartate aminotransferase increased [Recovered/Resolved]
  - Alanine aminotransferase increased [Recovered/Resolved]
